FAERS Safety Report 12661994 (Version 1)
Quarter: 2016Q3

REPORT INFORMATION
  Report Type: Spontaneous
  Country: US (occurrence: US)
  Receive Date: 20160817
  Receipt Date: 20160817
  Transmission Date: 20161109
  Serious: No
  Sender: FDA-Public Use
  Company Number: US-009507513-1608USA000560

PATIENT
  Age: 27 Year
  Sex: Female
  Weight: 101.59 kg

DRUGS (2)
  1. NEXPLANON [Suspect]
     Active Substance: ETONOGESTREL
     Indication: CONTRACEPTION
     Dosage: DOSE/FREQUENCY: 3 YEAR IMPLANT/THERAPY ROUTE: IMPLANT IN LEFT ARM
     Route: 059
     Dates: start: 20160304
  2. NEXPLANON [Suspect]
     Active Substance: ETONOGESTREL
     Indication: MENSTRUAL CYCLE MANAGEMENT

REACTIONS (7)
  - Hypomenorrhoea [Unknown]
  - Weight increased [Unknown]
  - Menstruation delayed [Unknown]
  - Product use issue [Unknown]
  - Dysmenorrhoea [Unknown]
  - Headache [Unknown]
  - Menstrual disorder [Unknown]

NARRATIVE: CASE EVENT DATE: 2016
